FAERS Safety Report 10178337 (Version 1)
Quarter: 2014Q2

REPORT INFORMATION
  Report Type: Spontaneous
  Country: US (occurrence: None)
  Receive Date: 20140516
  Receipt Date: 20140516
  Transmission Date: 20141212
  Serious: Yes (Disabling, Other)
  Sender: FDA-Public Use
  Company Number: None

PATIENT
  Age: 47 Year
  Sex: Female
  Weight: 74.84 kg

DRUGS (2)
  1. MACROBID [Suspect]
     Indication: URINARY TRACT INFECTION
     Dosage: 100 MG?1 PILL?TWICE DAILY?BY MOUTH
     Route: 048
     Dates: start: 20130712, end: 20130716
  2. GABAPENTIN [Concomitant]

REACTIONS (2)
  - Burning sensation [None]
  - Neuropathy peripheral [None]
